FAERS Safety Report 25955360 (Version 1)
Quarter: 2025Q4

REPORT INFORMATION
  Report Type: Report from Study
  Country: EU (occurrence: EU)
  Receive Date: 20251024
  Receipt Date: 20251024
  Transmission Date: 20260117
  Serious: Yes (Hospitalization)
  Sender: IPSEN BIOPHARMACEUTICALS, INC.
  Company Number: EU-SERVIER-S24001280

PATIENT
  Age: 56 Year
  Sex: Male

DRUGS (16)
  1. ONIVYDE [Suspect]
     Active Substance: IRINOTECAN HYDROCHLORIDE
     Indication: Pancreatic carcinoma metastatic
     Dosage: 100.84 MG/M2, D1 OF 14-DAY CYCLE
     Dates: start: 20240123, end: 20240123
  2. ONIVYDE [Suspect]
     Active Substance: IRINOTECAN HYDROCHLORIDE
     Dosage: 100.84 MG/M2, D1 OF 14-DAY CYCLE
     Dates: start: 20240214, end: 20240214
  3. OXALIPLATIN [Suspect]
     Active Substance: OXALIPLATIN
     Indication: Pancreatic carcinoma metastatic
     Dosage: 121.01 MG/M2, D1 OF 14-DAY CYCLE
     Dates: start: 20240123, end: 20240123
  4. OXALIPLATIN [Suspect]
     Active Substance: OXALIPLATIN
     Dosage: 121.01 MG/M2, D1 OF 14-DAY CYCLE
     Dates: start: 20240214, end: 20240214
  5. LEUCOVORIN [Suspect]
     Active Substance: LEUCOVORIN\LEUCOVORIN CALCIUM
     Indication: Pancreatic carcinoma metastatic
     Dosage: 806.74 MG/M2, D1 OF 14-DAY CYCLE
     Dates: start: 20240123, end: 20240123
  6. LEUCOVORIN [Suspect]
     Active Substance: LEUCOVORIN\LEUCOVORIN CALCIUM
     Dosage: 806.74 MG/M2, D1 OF 14-DAY CYCLE
     Dates: start: 20240214, end: 20240214
  7. FLUOROURACIL [Suspect]
     Active Substance: FLUOROURACIL
     Indication: Pancreatic carcinoma metastatic
     Dosage: 4840.41 MG/M2, D1-D2 OF 14-DAY CYCLE
     Dates: start: 20240123, end: 20240123
  8. FLUOROURACIL [Suspect]
     Active Substance: FLUOROURACIL
     Dosage: 4840.41 MG/M2, D1-D2 OF 14-DAY CYCLE
     Route: 042
     Dates: start: 20240214, end: 20240214
  9. CETIRIZINE [Concomitant]
     Active Substance: CETIRIZINE HYDROCHLORIDE
     Indication: Product used for unknown indication
     Dosage: UNK
  10. TADALAFIL [Concomitant]
     Active Substance: TADALAFIL
     Indication: Product used for unknown indication
     Dosage: UNK
  11. PANTOPRAZOLE [Concomitant]
     Active Substance: PANTOPRAZOLE
     Indication: Gastrooesophageal reflux disease
     Dosage: 1 DF, QD
     Dates: start: 20240112
  12. TILIDINE [Concomitant]
     Active Substance: TILIDINE
     Indication: Pain
     Dosage: 1 DF, QD
     Dates: start: 20240118
  13. ONDANSETRON [Concomitant]
     Active Substance: ONDANSETRON
     Indication: Product used for unknown indication
     Dosage: UNK
  14. LOPERAMIDE [Concomitant]
     Active Substance: LOPERAMIDE
     Indication: Product used for unknown indication
     Dosage: UNK
  15. VOLTAREN [Concomitant]
     Active Substance: DICLOFENAC SODIUM
     Indication: Pain
     Dosage: 1 DF, BID
     Route: 048
     Dates: start: 20240105
  16. NOVALGIN [Concomitant]
     Indication: Pain
     Dosage: 1 DF, QD
     Route: 048
     Dates: start: 20240118

REACTIONS (1)
  - Diarrhoea haemorrhagic [Recovered/Resolved]

NARRATIVE: CASE EVENT DATE: 20240202
